FAERS Safety Report 8715530 (Version 2)
Quarter: 2015Q2

REPORT INFORMATION
  Report Type: Report from Study
  Country: US (occurrence: US)
  Receive Date: 20120809
  Receipt Date: 20150529
  Transmission Date: 20150821
  Serious: Yes (Death)
  Sender: FDA-Public Use
  Company Number: US-ROCHE-1098771

PATIENT
  Sex: Male

DRUGS (9)
  1. HYDROMORPHONE [Concomitant]
     Active Substance: HYDROMORPHONE
  2. LORAZEPAM. [Concomitant]
     Active Substance: LORAZEPAM
  3. ACTIVASE [Suspect]
     Active Substance: ALTEPLASE
     Indication: ENDOCARDITIS
     Route: 065
  4. MAGNESIUM SULFATE. [Concomitant]
     Active Substance: MAGNESIUM SULFATE
  5. METRONIDAZOLE. [Concomitant]
     Active Substance: METRONIDAZOLE
  6. ASPIRIN. [Concomitant]
     Active Substance: ASPIRIN
  7. HEPARIN [Concomitant]
     Active Substance: HEPARIN SODIUM
  8. WARFARIN [Concomitant]
     Active Substance: WARFARIN
     Route: 065
  9. DAPTOMYCIN. [Concomitant]
     Active Substance: DAPTOMYCIN

REACTIONS (1)
  - Death [Fatal]
